FAERS Safety Report 4649916-1 (Version None)
Quarter: 2005Q2

REPORT INFORMATION
  Report Type: 
  Country: None (occurrence: None)
  Receive Date: 20050502
  Receipt Date: 20050425
  Transmission Date: 20051028
  Serious: Yes (Other)
  Sender: FDA-Public Use
  Company Number: GXKR2005GB00959

PATIENT
  Age: 47 Year
  Sex: Male

DRUGS (11)
  1. DOXAZOSIN (NGX) [Suspect]
     Route: 048
  2. ZYVOX [Suspect]
     Indication: STAPHYLOCOCCAL INFECTION
     Dosage: 600 MG, BID
     Route: 042
     Dates: start: 20041017, end: 20041020
  3. PROCYCLIDINE HYDROCHLORIDE 2MG TAB [Suspect]
     Route: 048
  4. ATENOLOL (NGX) [Suspect]
     Route: 048
  5. RIFAMPICIN [Suspect]
     Route: 042
  6. FENTANYL [Suspect]
     Route: 042
  7. AMISULPRIDE [Suspect]
     Route: 048
  8. OMEPRAZOL (NGX) [Suspect]
     Route: 065
  9. PANTOPRAZOLE SODIUM [Suspect]
     Route: 065
  10. ZOPICLONE [Suspect]
     Route: 065
  11. HALOPERIDOL [Suspect]
     Route: 065

REACTIONS (3)
  - BLOOD PRESSURE SYSTOLIC INCREASED [None]
  - DRUG INTERACTION [None]
  - HYPERTENSION [None]
